FAERS Safety Report 23035159 (Version 2)
Quarter: 2025Q1

REPORT INFORMATION
  Report Type: Spontaneous
  Country: US (occurrence: US)
  Receive Date: 20231005
  Receipt Date: 20250103
  Transmission Date: 20250409
  Serious: No
  Sender: BIOMARIN
  Company Number: US-SA-SAC20230928001429

PATIENT

DRUGS (1)
  1. ALDURAZYME [Suspect]
     Active Substance: LARONIDASE
     Indication: Mucopolysaccharidosis I
     Dosage: 29 MG, QW
     Route: 042
     Dates: start: 201609

REACTIONS (2)
  - Weight decreased [Unknown]
  - Weight increased [Unknown]

NARRATIVE: CASE EVENT DATE: 20230101
